FAERS Safety Report 6121890-0 (Version None)
Quarter: 2009Q1

REPORT INFORMATION
  Report Type: 
  Country: None (occurrence: None)
  Receive Date: 20090313
  Receipt Date: 20090226
  Transmission Date: 20090719
  Serious: Yes (Hospitalization, Other)
  Sender: FDA-Public Use
  Company Number: 2009S1003655

PATIENT
  Age: 74 Year
  Sex: Male
  Weight: 97 kg

DRUGS (6)
  1. METOPROLOL TARTRATE [Suspect]
     Indication: HYPERTENSION
     Dosage: 100 MG; DAILY; ORAL
     Route: 048
  2. CELEBREX [Suspect]
     Indication: OSTEOARTHRITIS
     Dosage: 100 MG; TWICE A DAY; ORAL
     Route: 048
     Dates: end: 20081120
  3. CORDARONE [Suspect]
     Indication: CARDIAC FIBRILLATION
     Dosage: 200 MG; DAILY; ORAL
     Route: 048
     Dates: start: 20080301
  4. KINZALMONO (TELMISARTAN) (80 MG) [Suspect]
     Indication: HYPERTENSION
     Dosage: 80 MG; DAILY; ORAL
     Route: 048
  5. FALITHROM [Concomitant]
  6. TRIAMPUR [Concomitant]

REACTIONS (3)
  - BRADYCARDIA [None]
  - DIZZINESS [None]
  - PARAESTHESIA [None]
